FAERS Safety Report 6359092-5 (Version None)
Quarter: 2009Q3

REPORT INFORMATION
  Report Type: 
  Country: None (occurrence: None)
  Receive Date: 20090917
  Receipt Date: 20071205
  Transmission Date: 20100115
  Serious: Yes (Hospitalization, Other)
  Sender: FDA-Public Use
  Company Number: US-ASTRAZENECA-2006UW21283

PATIENT
  Age: 9472 Day
  Sex: Female
  Weight: 75.7 kg

DRUGS (40)
  1. SEROQUEL [Suspect]
     Indication: ANXIETY
     Route: 048
     Dates: start: 20030708, end: 20030710
  2. SEROQUEL [Suspect]
     Indication: DEPRESSION
     Route: 048
     Dates: start: 20030708, end: 20030710
  3. SEROQUEL [Suspect]
     Indication: BIPOLAR DISORDER
     Route: 048
     Dates: start: 20030708, end: 20030710
  4. SEROQUEL [Suspect]
     Dosage: 50-10 MG AT BEDTIME
     Route: 048
     Dates: start: 20030708, end: 20030101
  5. SEROQUEL [Suspect]
     Dosage: 50-10 MG AT BEDTIME
     Route: 048
     Dates: start: 20030708, end: 20030101
  6. SEROQUEL [Suspect]
     Dosage: 50-10 MG AT BEDTIME
     Route: 048
     Dates: start: 20030708, end: 20030101
  7. SEROQUEL [Suspect]
     Route: 048
     Dates: start: 20030711
  8. SEROQUEL [Suspect]
     Route: 048
     Dates: start: 20030711
  9. SEROQUEL [Suspect]
     Route: 048
     Dates: start: 20030711
  10. PAXIL [Concomitant]
     Dates: start: 20011205, end: 20020801
  11. EFFEXOR XR [Concomitant]
     Dosage: 75 MG THEN 40 MG
     Dates: end: 20030708
  12. ELAVIL [Concomitant]
     Dates: start: 20030304, end: 20030708
  13. REMERON [Concomitant]
     Dates: end: 20011205
  14. HYDROCODONE [Concomitant]
     Dates: start: 20031013
  15. AZITHROMYCIN [Concomitant]
  16. OXYCODONE [Concomitant]
     Dates: start: 20070619
  17. DIAZEPAM [Concomitant]
     Dates: start: 20071112
  18. PROMETHAZINE [Concomitant]
     Dates: start: 20050902
  19. ZOFRAN [Concomitant]
  20. FLEXTRA [Concomitant]
     Dates: start: 20040331
  21. TIZANIDINE HCL [Concomitant]
  22. VALTREX [Concomitant]
     Dates: start: 20040709
  23. AMOXICILLIN [Concomitant]
     Dates: start: 20050511
  24. LISINOPRIL [Concomitant]
     Dosage: 2.5-20 MG
     Dates: start: 20050708
  25. ACETAMINOPHEN [Concomitant]
     Dates: start: 20050708
  26. HUMULIN R [Concomitant]
     Dates: start: 20021227
  27. DICLOFENAC SODIUM [Concomitant]
     Dates: start: 20030816
  28. BEXTRA [Concomitant]
  29. LANTUS [Concomitant]
     Dosage: 25-30 UNITS
     Dates: start: 20030929
  30. HUMALOG [Concomitant]
     Dosage: 30 UNITS, AT SUPPER
     Dates: start: 20011107
  31. NEURONTIN [Concomitant]
     Dates: start: 20031014
  32. MIGRIN-A [Concomitant]
     Dates: start: 20040324
  33. KETOROLAC TROMETHAMINE [Concomitant]
     Dates: start: 20040724
  34. PROTONIX [Concomitant]
  35. PHENERGAN [Concomitant]
  36. ATIVAN [Concomitant]
  37. ZELNORM [Concomitant]
  38. CELEBREX [Concomitant]
  39. ZOLOFT [Concomitant]
     Dates: start: 20050926
  40. CELEXA [Concomitant]
     Dates: start: 20030708, end: 20030101

REACTIONS (10)
  - CHOLECYSTECTOMY [None]
  - DIABETES MELLITUS [None]
  - DIABETES MELLITUS INADEQUATE CONTROL [None]
  - DIABETIC GASTROPARESIS [None]
  - DIABETIC KETOACIDOSIS [None]
  - DIABETIC NEUROPATHY [None]
  - HYPERGLYCAEMIA [None]
  - HYSTERECTOMY [None]
  - PANCREATITIS [None]
  - VOMITING [None]
